FAERS Safety Report 7275809-X (Version None)
Quarter: 2011Q1

REPORT INFORMATION
  Report Type: 
  Country: None (occurrence: None)
  Receive Date: 20110204
  Receipt Date: 20110128
  Transmission Date: 20110831
  Serious: Yes (Other)
  Sender: FDA-Public Use
  Company Number: CHPA2011BR01794

PATIENT
  Sex: Male

DRUGS (1)
  1. TRIMEDAL TOSSE [Suspect]
     Indication: PYREXIA
     Dosage: 1 DF, ONCE/SINGLE
     Route: 048
     Dates: start: 20110128, end: 20110128

REACTIONS (2)
  - PYREXIA [None]
  - DRUG INEFFECTIVE FOR UNAPPROVED INDICATION [None]
